FAERS Safety Report 15200705 (Version 1)
Quarter: 2018Q4

REPORT INFORMATION
  Report Type: Spontaneous
  Country: FR (occurrence: FR)
  Receive Date: 20180726
  Receipt Date: 20180726
  Transmission Date: 20190204
  Serious: Yes (Hospitalization)
  Sender: FDA-Public Use
  Company Number: FR-TEVA-2018-FR-929981

PATIENT
  Age: 79 Year
  Sex: Female

DRUGS (11)
  1. ACIDE FOLIQUE [Concomitant]
     Active Substance: FOLIC ACID
     Indication: PRODUCT USED FOR UNKNOWN INDICATION
     Route: 065
     Dates: start: 20171024
  2. CEFTRIAXONE BASE [Suspect]
     Active Substance: CEFTRIAXONE
     Indication: LUNG INFECTION
     Route: 048
     Dates: start: 20171018, end: 20171021
  3. DICHLORHYDRATE DE CETIRIZINE [Suspect]
     Active Substance: CETIRIZINE HYDROCHLORIDE
     Indication: PRODUCT USED FOR UNKNOWN INDICATION
     Route: 048
     Dates: start: 20171024
  4. LOXEN L P 50 MG, G?LULE ? LIB?RATION PROLONG?E [Suspect]
     Active Substance: NICARDIPINE HYDROCHLORIDE
     Route: 048
  5. KARDEGIC [Concomitant]
     Active Substance: ASPIRIN DL-LYSINE
  6. KEPPRA [Concomitant]
     Active Substance: LEVETIRACETAM
     Indication: EPILEPSY
     Route: 048
  7. MOVICOL [Concomitant]
     Active Substance: POLYETHYLENE GLYCOL 3350\POTASSIUM CHLORIDE\SODIUM BICARBONATE\SODIUM CHLORIDE
     Route: 048
  8. MINISINTROM [Concomitant]
     Active Substance: ACENOCOUMAROL
     Route: 048
  9. BISOCE 1,25 MG, COMPRIM? PELLICUL? [Concomitant]
     Active Substance: BISOPROLOL FUMARATE
     Indication: PRODUCT USED FOR UNKNOWN INDICATION
     Route: 048
  10. RIVOTRIL [Concomitant]
     Active Substance: CLONAZEPAM
     Indication: EPILEPSY
     Route: 048
  11. INEXIUM 20 MG, COMPRIM? GASTRO-R?SISTANT [Suspect]
     Active Substance: ESOMEPRAZOLE MAGNESIUM
     Route: 048

REACTIONS (1)
  - Acute generalised exanthematous pustulosis [Recovering/Resolving]

NARRATIVE: CASE EVENT DATE: 20171025
